FAERS Safety Report 5179951-9 (Version None)
Quarter: 2006Q4

REPORT INFORMATION
  Report Type: 
  Country: None (occurrence: None)
  Receive Date: 20061211
  Receipt Date: 20061123
  Transmission Date: 20070319
  Serious: Yes (Disabling, Other)
  Sender: FDA-Public Use
  Company Number: S06-CAN-05056-01

PATIENT
  Age: 60 Year
  Sex: Female

DRUGS (7)
  1. CIPRALEX          ESCITALOPRAM) [Suspect]
     Indication: DEPRESSION
     Dosage: 10 MG QD PO
     Route: 048
     Dates: start: 20061114, end: 20061114
  2. CIPRALEX           (ESCITALOPRAM) [Suspect]
     Indication: DEPRESSION
     Dosage: 5 MG BID PO
     Route: 048
     Dates: start: 20061115, end: 20061119
  3. CIPRALEX             (ESCITALOPRAM) [Suspect]
     Indication: DEPRESSION
     Dosage: 10 MG QD PO
     Route: 048
     Dates: start: 20061120, end: 20061120
  4. FLOVENT [Concomitant]
  5. SPIRIVA [Concomitant]
  6. BREBA                  (SALBUTAMOL W/IPRATROPIUM) [Concomitant]
  7. ALTACE [Concomitant]

REACTIONS (8)
  - CONFUSIONAL STATE [None]
  - DIARRHOEA [None]
  - DIZZINESS [None]
  - DYSPHAGIA [None]
  - HEADACHE [None]
  - NAUSEA [None]
  - PHARYNGEAL OEDEMA [None]
  - PRURITUS [None]
